FAERS Safety Report 15889060 (Version 1)
Quarter: 2019Q1

REPORT INFORMATION
  Report Type: Spontaneous
  Country: US (occurrence: US)
  Receive Date: 20190129
  Receipt Date: 20190129
  Transmission Date: 20190417
  Serious: Yes (Hospitalization)
  Sender: FDA-Public Use
  Company Number: None

PATIENT
  Sex: Female

DRUGS (29)
  1. LATISSE [Concomitant]
     Active Substance: BIMATOPROST
  2. LOSARTAN/HCTZ [Concomitant]
     Active Substance: HYDROCHLOROTHIAZIDE\LOSARTAN
  3. METAXALONE. [Concomitant]
     Active Substance: METAXALONE
  4. METHOTREXATE. [Concomitant]
     Active Substance: METHOTREXATE
  5. MULTIVITAMIN [Concomitant]
     Active Substance: VITAMINS
  6. PANTOPRAZOLE [Concomitant]
     Active Substance: PANTOPRAZOLE
  7. AMARYL [Concomitant]
     Active Substance: GLIMEPIRIDE
  8. CALCIUM 600 [Concomitant]
     Active Substance: CALCIUM
  9. FOLIC ACID. [Concomitant]
     Active Substance: FOLIC ACID
  10. FOSAMAX [Concomitant]
     Active Substance: ALENDRONATE SODIUM
  11. MICROLET [Concomitant]
  12. GABAPENTIN. [Concomitant]
     Active Substance: GABAPENTIN
  13. ZOLPIDEM [Concomitant]
     Active Substance: ZOLPIDEM\ZOLPIDEM TARTRATE
  14. VITAMIN D3 [Concomitant]
     Active Substance: CHOLECALCIFEROL
  15. SIMVASTATIN. [Concomitant]
     Active Substance: SIMVASTATIN
  16. PREDNISONE. [Concomitant]
     Active Substance: PREDNISONE
  17. HYDROXYCHLOR [Concomitant]
     Active Substance: HYDROXYCHLOROQUINE
  18. LASIX [Concomitant]
     Active Substance: FUROSEMIDE
  19. TEMAZEPAM. [Concomitant]
     Active Substance: TEMAZEPAM
  20. ASPIRIN. [Concomitant]
     Active Substance: ASPIRIN
  21. FUROSEMIDE. [Concomitant]
     Active Substance: FUROSEMIDE
  22. GLIMEPIRIDE. [Concomitant]
     Active Substance: GLIMEPIRIDE
  23. PROTONIX [Concomitant]
     Active Substance: PANTOPRAZOLE SODIUM
  24. OXYCODONE AND ACETAMINOPHEN [Concomitant]
     Active Substance: ACETAMINOPHEN\OXYCODONE HYDROCHLORIDE
  25. XELJANZ [Suspect]
     Active Substance: TOFACITINIB CITRATE
     Indication: RHEUMATOID ARTHRITIS
     Route: 048
     Dates: start: 20170329
  26. ENBREL [Concomitant]
     Active Substance: ETANERCEPT
  27. FENTANYL. [Concomitant]
     Active Substance: FENTANYL
  28. HYDROCO/APAP [Concomitant]
     Active Substance: ACETAMINOPHEN\HYDROCODONE
  29. KLOR-CON [Concomitant]
     Active Substance: POTASSIUM CHLORIDE

REACTIONS (1)
  - Infection [None]
